FAERS Safety Report 7986857-6 (Version None)
Quarter: 2011Q4

REPORT INFORMATION
  Report Type: 
  Country: None (occurrence: None)
  Receive Date: 20111216
  Receipt Date: 20110301
  Transmission Date: 20120403
  Serious: No
  Sender: FDA-Public Use
  Company Number: US-BRISTOL-MYERS SQUIBB COMPANY-15578230

PATIENT
  Age: 59 Year
  Sex: Female
  Weight: 86 kg

DRUGS (8)
  1. FLAXSEED [Concomitant]
     Dosage: 1DF=1 GEL TAB.
  2. CRESTOR [Concomitant]
     Indication: MUSCLE SPASMS
  3. ABILIFY [Suspect]
     Indication: BIPOLAR DISORDER
     Dates: start: 20110223
  4. GLUCOSAMINE [Concomitant]
     Dosage: PERIODICALLY
  5. LEVOXYL [Concomitant]
     Indication: THYROID DISORDER
  6. TOPROL-XL [Concomitant]
  7. FISH OIL [Concomitant]
  8. LITHIUM [Concomitant]

REACTIONS (2)
  - INSOMNIA [None]
  - HYPERTENSION [None]
